FAERS Safety Report 6110909-9 (Version None)
Quarter: 2009Q1

REPORT INFORMATION
  Report Type: 
  Country: None (occurrence: None)
  Receive Date: 20090311
  Receipt Date: 20090227
  Transmission Date: 20090719
  Serious: Yes (Hospitalization)
  Sender: FDA-Public Use
  Company Number: US-BIOGENIDEC-2009BI000537

PATIENT
  Age: 63 Year
  Sex: Female

DRUGS (7)
  1. TYSABRI [Suspect]
     Indication: MULTIPLE SCLEROSIS
     Route: 042
     Dates: start: 20080311
  2. OXYTROL [Concomitant]
  3. DETROL LA [Concomitant]
  4. BACLOFEN [Concomitant]
  5. OS-CAL WITH VITAMIN D [Concomitant]
  6. NORVASC [Concomitant]
  7. TYLENOL W/ CODEINE NO. 3 [Concomitant]

REACTIONS (18)
  - ASTHENIA [None]
  - BACK PAIN [None]
  - BLOOD IRON DECREASED [None]
  - CHEST DISCOMFORT [None]
  - CHILLS [None]
  - DECREASED APPETITE [None]
  - DYSPNOEA [None]
  - GASTRITIS [None]
  - GASTROINTESTINAL TRACT ADENOMA [None]
  - HAEMOGLOBIN DECREASED [None]
  - HAEMOPHILUS INFECTION [None]
  - INTERVERTEBRAL DISC COMPRESSION [None]
  - MULTIPLE SCLEROSIS [None]
  - NEUROGENIC BLADDER [None]
  - PNEUMONIA [None]
  - PYREXIA [None]
  - RENAL CYST [None]
  - URINARY TRACT INFECTION [None]
